FAERS Safety Report 7628758-9 (Version None)
Quarter: 2011Q3

REPORT INFORMATION
  Report Type: 
  Country: None (occurrence: None)
  Receive Date: 20110722
  Receipt Date: 20110711
  Transmission Date: 20111222
  Serious: Yes (Hospitalization, Other)
  Sender: FDA-Public Use
  Company Number: US-BAYER-2011-023283

PATIENT
  Age: 23 Year
  Sex: Female
  Weight: 41.27 kg

DRUGS (7)
  1. NEURONTIN [Concomitant]
  2. YASMIN [Suspect]
     Indication: CONTRACEPTION
     Dosage: UNK UNK, QD
     Dates: start: 20030101
  3. IBUPROFEN [Concomitant]
     Indication: PRODUCT USED FOR UNKNOWN INDICATION
     Dosage: UNK UNK, PRN
  4. DONNATAL [Concomitant]
  5. OXYCONTIN [Concomitant]
  6. FIORICET [Concomitant]
  7. VITAMIN B-12 [Concomitant]

REACTIONS (6)
  - CHOLECYSTITIS CHRONIC [None]
  - PANCREATIC DISORDER [None]
  - ABDOMINAL PAIN [None]
  - DYSPEPSIA [None]
  - PAIN [None]
  - CHOLELITHIASIS [None]
